FAERS Safety Report 22016655 (Version 1)
Quarter: 2023Q1

REPORT INFORMATION
  Report Type: Spontaneous
  Country: US (occurrence: US)
  Receive Date: 20230221
  Receipt Date: 20230221
  Transmission Date: 20230417
  Serious: Yes (Other)
  Sender: FDA-Public Use
  Company Number: US-BRISTOL-MYERS SQUIBB COMPANY-2023-024613

PATIENT
  Age: 87 Year
  Sex: Male

DRUGS (1)
  1. REVLIMID [Suspect]
     Active Substance: LENALIDOMIDE
     Indication: Refractory anaemia with ringed sideroblasts
     Route: 048

REACTIONS (8)
  - Hypotension [Unknown]
  - Abdominal discomfort [Unknown]
  - Blood potassium increased [Unknown]
  - Epistaxis [Unknown]
  - Renal disorder [Unknown]
  - Asbestosis [Unknown]
  - Dyspnoea [Unknown]
  - Off label use [Unknown]
